FAERS Safety Report 4657697-0 (Version None)
Quarter: 2005Q2

REPORT INFORMATION
  Report Type: 
  Country: None (occurrence: None)
  Receive Date: 20050411
  Receipt Date: 20041223
  Transmission Date: 20051028
  Serious: Yes (Hospitalization)
  Sender: FDA-Public Use
  Company Number: GXBR2004US00488

PATIENT
  Age: 84 Year
  Sex: Female
  Weight: 43.1 kg

DRUGS (6)
  1. LISINOPRIL [Suspect]
     Indication: HYPERTENSION
     Dosage: 10 MG, QD, ORAL
     Route: 048
     Dates: start: 20040815, end: 20040815
  2. THEOPHYLLINE [Concomitant]
  3. PREVACID [Concomitant]
  4. PROCTOCORT (HYDROCORTISONE ACETATE) [Concomitant]
  5. SYNALAR (FLUOCINOLONE ACETONIDE) [Concomitant]
  6. ASPIRIN [Concomitant]

REACTIONS (5)
  - ARTHRALGIA [None]
  - CHEST PAIN [None]
  - ERUCTATION [None]
  - HEADACHE [None]
  - PAIN IN EXTREMITY [None]
